FAERS Safety Report 26054710 (Version 1)
Quarter: 2025Q4

REPORT INFORMATION
  Report Type: Spontaneous
  Country: EU (occurrence: EU)
  Receive Date: 20251117
  Receipt Date: 20251117
  Transmission Date: 20260118
  Serious: Yes (Other)
  Sender: BRECKENRIDGE PHARMACEUTICAL, INC.
  Company Number: EU-Breckenridge Pharmaceutical, Inc.-2188714

PATIENT
  Sex: Male

DRUGS (28)
  1. OMEPRAZOLE [Suspect]
     Active Substance: OMEPRAZOLE
     Indication: Product used for unknown indication
  2. ASPIRIN [Suspect]
     Active Substance: ASPIRIN
  3. RIVAROXABAN [Suspect]
     Active Substance: RIVAROXABAN
  4. ADALIMUMAB [Concomitant]
     Active Substance: ADALIMUMAB
  5. ALBENDAZOLE [Concomitant]
     Active Substance: ALBENDAZOLE
  6. DESOXIMETASONE [Suspect]
     Active Substance: DESOXIMETASONE
  7. FUROSEMIDE [Suspect]
     Active Substance: FUROSEMIDE
  8. ESCITALOPRAM OXALATE [Suspect]
     Active Substance: ESCITALOPRAM OXALATE
  9. MEBEVERINE HYDROCHLORIDE [Suspect]
     Active Substance: MEBEVERINE HYDROCHLORIDE
  10. CHOLECALCIFEROL [Suspect]
     Active Substance: CHOLECALCIFEROL
  11. GABAPENTIN [Suspect]
     Active Substance: GABAPENTIN
  12. OXYCODONE HYDROCHLORIDE [Suspect]
     Active Substance: OXYCODONE HYDROCHLORIDE
  13. LEVOTHYROXINE SODIUM [Suspect]
     Active Substance: LEVOTHYROXINE SODIUM
  14. TOZINAMERAN [Suspect]
     Active Substance: TOZINAMERAN
  15. WARFARIN SODIUM [Suspect]
     Active Substance: WARFARIN SODIUM
  16. WARFARIN [Suspect]
     Active Substance: WARFARIN
  17. VEDOLIZUMAB [Suspect]
     Active Substance: VEDOLIZUMAB
  18. SULFASALAZINE [Suspect]
     Active Substance: SULFASALAZINE
  19. INFLIXIMAB [Suspect]
     Active Substance: INFLIXIMAB
  20. PREDNISONE [Suspect]
     Active Substance: PREDNISONE
  21. AMINOSALICYLIC ACID [Suspect]
     Active Substance: AMINOSALICYLIC ACID
  22. HYDROCORTISONE SODIUM SUCCINATE [Suspect]
     Active Substance: HYDROCORTISONE SODIUM SUCCINATE
  23. VEDOLIZUMAB [Suspect]
     Active Substance: VEDOLIZUMAB
  24. HYDROCORTISONE ACETATE [Suspect]
     Active Substance: HYDROCORTISONE ACETATE
  25. CANDESARTAN [Suspect]
     Active Substance: CANDESARTAN
  26. BUDESONIDE [Suspect]
     Active Substance: BUDESONIDE
  27. MESALAMINE [Suspect]
     Active Substance: MESALAMINE
  28. ADALIMUMAB [Suspect]
     Active Substance: ADALIMUMAB

REACTIONS (53)
  - Rectal haemorrhage [Not Recovered/Not Resolved]
  - Pulmonary embolism [Not Recovered/Not Resolved]
  - Cardiac murmur [Not Recovered/Not Resolved]
  - COVID-19 [Not Recovered/Not Resolved]
  - Pain in extremity [Not Recovered/Not Resolved]
  - Depression [Not Recovered/Not Resolved]
  - Fatigue [Not Recovered/Not Resolved]
  - Gingival pain [Not Recovered/Not Resolved]
  - Arthritis [Not Recovered/Not Resolved]
  - Tinnitus [Not Recovered/Not Resolved]
  - Palpitations [Not Recovered/Not Resolved]
  - Tubulointerstitial nephritis [Not Recovered/Not Resolved]
  - Eczema [Not Recovered/Not Resolved]
  - Catarrh [Not Recovered/Not Resolved]
  - Swollen tongue [Not Recovered/Not Resolved]
  - Confusional state [Not Recovered/Not Resolved]
  - Accidental overdose [Not Recovered/Not Resolved]
  - Burns second degree [Not Recovered/Not Resolved]
  - Dysgeusia [Not Recovered/Not Resolved]
  - Somnolence [Not Recovered/Not Resolved]
  - Pyrexia [Not Recovered/Not Resolved]
  - Hypopnoea [Not Recovered/Not Resolved]
  - Pain [Not Recovered/Not Resolved]
  - Parosmia [Not Recovered/Not Resolved]
  - Rhinitis [Not Recovered/Not Resolved]
  - Systemic lupus erythematosus [Not Recovered/Not Resolved]
  - Abdominal discomfort [Not Recovered/Not Resolved]
  - Headache [Not Recovered/Not Resolved]
  - Nightmare [Not Recovered/Not Resolved]
  - Cerebrovascular accident [Not Recovered/Not Resolved]
  - Vertigo [Not Recovered/Not Resolved]
  - Migraine [Not Recovered/Not Resolved]
  - Loss of personal independence in daily activities [Unknown]
  - Medication error [Not Recovered/Not Resolved]
  - Inappropriate schedule of product administration [Not Recovered/Not Resolved]
  - Intentional product use issue [Not Recovered/Not Resolved]
  - Off label use [Unknown]
  - Product use in unapproved indication [Unknown]
  - Drug ineffective [Not Recovered/Not Resolved]
  - Rash [Not Recovered/Not Resolved]
  - Frequent bowel movements [Not Recovered/Not Resolved]
  - Condition aggravated [Not Recovered/Not Resolved]
  - Colitis ulcerative [Not Recovered/Not Resolved]
  - Adverse drug reaction [Not Recovered/Not Resolved]
  - Deep vein thrombosis [Not Recovered/Not Resolved]
  - Haematochezia [Not Recovered/Not Resolved]
  - Bronchiectasis [Not Recovered/Not Resolved]
  - Steroid dependence [Not Recovered/Not Resolved]
  - Loss of personal independence in daily activities [Not Recovered/Not Resolved]
  - Impaired work ability [Not Recovered/Not Resolved]
  - Stress [Not Recovered/Not Resolved]
  - Weight decreased [Not Recovered/Not Resolved]
  - Impaired quality of life [Not Recovered/Not Resolved]
